FAERS Safety Report 4650534-X (Version None)
Quarter: 2005Q2

REPORT INFORMATION
  Report Type: 
  Country: None (occurrence: None)
  Receive Date: 20050428
  Receipt Date: 20050412
  Transmission Date: 20051028
  Serious: Yes (Life-Threatening)
  Sender: FDA-Public Use
  Company Number: 2005-BP-05029BP

PATIENT
  Age: 37 Year
  Sex: Female
  Weight: 134.2 kg

DRUGS (1)
  1. MOBIC [Suspect]
     Indication: ARTHRALGIA
     Dosage: 7.5 MG (7.5 MG), PO
     Route: 048
     Dates: start: 20050304, end: 20050304

REACTIONS (4)
  - DYSPHAGIA [None]
  - DYSPNOEA [None]
  - SWELLING FACE [None]
  - URTICARIA [None]
